FAERS Safety Report 9642417 (Version 1)
Quarter: 2013Q4

REPORT INFORMATION
  Report Type: Report from Study
  Country: CN (occurrence: CN)
  Receive Date: 20131024
  Receipt Date: 20131024
  Transmission Date: 20140711
  Serious: Yes (Other)
  Sender: FDA-Public Use
  Company Number: CN-ROCHE-1293139

PATIENT
  Age: 25 Year
  Sex: Male
  Weight: 80 kg

DRUGS (1)
  1. PEGASYS [Suspect]
     Indication: HEPATITIS B
     Route: 058
     Dates: start: 201209

REACTIONS (2)
  - White blood cell count decreased [Unknown]
  - Cachexia [Unknown]
